FAERS Safety Report 15619912 (Version 1)
Quarter: 2018Q4

REPORT INFORMATION
  Report Type: Spontaneous
  Country: US (occurrence: US)
  Receive Date: 20181115
  Receipt Date: 20181115
  Transmission Date: 20190205
  Serious: No
  Sender: FDA-Public Use
  Company Number: US-SCIEGEN PHARMACEUTICALS INC-2018SCISPO00720

PATIENT

DRUGS (2)
  1. LEVOTHYROXINE. [Concomitant]
     Active Substance: LEVOTHYROXINE
     Indication: HYPOTHYROIDISM
     Dosage: 88 MCG, QD (ONE TABLET A DAY)
     Route: 065
  2. ATORVASTATIN CALCIUM. [Suspect]
     Active Substance: ATORVASTATIN CALCIUM
     Indication: PRODUCT USED FOR UNKNOWN INDICATION
     Dosage: 10 MG, UNK
     Route: 048

REACTIONS (5)
  - Throat irritation [Unknown]
  - Product taste abnormal [Unknown]
  - Burn oral cavity [Unknown]
  - Burn oesophageal [Unknown]
  - Product dose omission [Unknown]

NARRATIVE: CASE EVENT DATE: 20181015
